FAERS Safety Report 13398417 (Version 4)
Quarter: 2017Q3

REPORT INFORMATION
  Report Type: Report from Study
  Country: US (occurrence: US)
  Receive Date: 20170403
  Receipt Date: 20170706
  Transmission Date: 20171127
  Serious: Yes (Hospitalization)
  Sender: FDA-Public Use
  Company Number: US-ACTELION-A-NJ2016-132304

PATIENT
  Age: 73 Year
  Sex: Female
  Weight: 52.61 kg

DRUGS (4)
  1. ADEMPAS [Concomitant]
     Active Substance: RIOCIGUAT
  2. ORENITRAM [Concomitant]
     Active Substance: TREPROSTINIL
  3. OPSUMIT [Suspect]
     Active Substance: MACITENTAN
     Indication: PULMONARY ARTERIAL HYPERTENSION
     Dosage: 10 MG, QD
     Route: 048
     Dates: start: 20160113
  4. NIFEDIPINE. [Concomitant]
     Active Substance: NIFEDIPINE

REACTIONS (8)
  - Condition aggravated [Unknown]
  - Respiratory arrest [Unknown]
  - Dyspnoea [Unknown]
  - Alopecia [Unknown]
  - Memory impairment [Unknown]
  - Sedation [Unknown]
  - Muscle spasms [Unknown]
  - Hypertension [Unknown]

NARRATIVE: CASE EVENT DATE: 20170317
